FAERS Safety Report 11469138 (Version 2)
Quarter: 2015Q4

REPORT INFORMATION
  Report Type: Spontaneous
  Country: JP (occurrence: JP)
  Receive Date: 20150908
  Receipt Date: 20151210
  Transmission Date: 20160304
  Serious: Yes (Death)
  Sender: FDA-Public Use
  Company Number: JP-TEVA-590934ISR

PATIENT
  Age: 78 Year
  Sex: Female
  Weight: 27 kg

DRUGS (11)
  1. E-FEN BUCCAL [Suspect]
     Active Substance: FENTANYL CITRATE
     Dosage: 100 MICROGRAM DAILY;
     Route: 002
     Dates: start: 20150615, end: 20150706
  2. OXYCODONE HYDROCHLORIDE HYDRATE [Concomitant]
     Active Substance: OXYCODONE HYDROCHLORIDE
     Route: 048
     Dates: start: 20150529, end: 20150603
  3. PYDOXAL [Concomitant]
     Active Substance: PYRIDOXAL
     Dosage: 60 MILLIGRAM DAILY;
     Route: 048
     Dates: end: 20150706
  4. LANSOPRAZOLE OD [Concomitant]
     Active Substance: LANSOPRAZOLE
     Dosage: 30 MILLIGRAM DAILY;
     Route: 048
     Dates: end: 20150706
  5. FENTOS [Concomitant]
     Active Substance: FENTANYL
     Indication: CANCER PAIN
     Dosage: 6 MILLIGRAM DAILY;
     Route: 062
     Dates: end: 20150706
  6. OXYCODONE HYDROCHLORIDE HYDRATE [Concomitant]
     Active Substance: OXYCODONE HYDROCHLORIDE
     Route: 048
     Dates: start: 20150604, end: 20150615
  7. E-FEN BUCCAL [Suspect]
     Active Substance: FENTANYL CITRATE
     Indication: BREAKTHROUGH PAIN
     Dosage: 100 MCG- 400MCG/ DAILY DOSE
     Route: 002
     Dates: start: 20150529, end: 20150614
  8. FENTOS [Concomitant]
     Active Substance: FENTANYL
     Dosage: 8 MILLIGRAM DAILY;
     Route: 062
     Dates: start: 20150529, end: 20150601
  9. OXYCODONE HYDROCHLORIDE HYDRATE [Concomitant]
     Active Substance: OXYCODONE HYDROCHLORIDE
     Indication: BREAKTHROUGH PAIN
     Route: 048
  10. FENTOS [Concomitant]
     Active Substance: FENTANYL
     Dosage: 12 MILLIGRAM DAILY;
     Route: 062
     Dates: start: 20150601, end: 20150706
  11. NOVAMIN [Concomitant]
     Active Substance: PROCHLORPERAZINE MALEATE
     Dosage: 15 MILLIGRAM DAILY;
     Route: 048
     Dates: end: 20150706

REACTIONS (2)
  - Colorectal cancer [Fatal]
  - Somnolence [Not Recovered/Not Resolved]

NARRATIVE: CASE EVENT DATE: 20150529
